FAERS Safety Report 5671608-0 (Version None)
Quarter: 2008Q1

REPORT INFORMATION
  Report Type: 
  Country: None (occurrence: None)
  Receive Date: 20080313
  Receipt Date: 20080220
  Transmission Date: 20080703
  Serious: Yes (Hospitalization)
  Sender: FDA-Public Use
  Company Number: 2008AL001376

PATIENT
  Age: 72 Year
  Sex: Male

DRUGS (12)
  1. ACYCLOVIR ORAL SUSPENSION          (ACYCLOVIR ORAL SUSPENSION) [Suspect]
     Indication: CHEMOTHERAPY
     Dates: start: 20070622, end: 20071116
  2. FLUCONAZOLE [Concomitant]
  3. CIPROFLOXACIN [Concomitant]
  4. CYCLOPHOSPHAMIDE [Concomitant]
  5. PREDNISOLONE [Concomitant]
  6. RITUXIMAB [Concomitant]
  7. VINCRISTINE [Concomitant]
  8. ALENDRONIC ACID [Concomitant]
  9. ALLOPURINOL [Concomitant]
  10. CO-TRIMOXAZOLE [Concomitant]
  11. LANSOPRAZOLE [Concomitant]
  12. ONDANSETRON [Concomitant]

REACTIONS (1)
  - TOXIC SKIN ERUPTION [None]
